FAERS Safety Report 19613692 (Version 1)
Quarter: 2021Q3

REPORT INFORMATION
  Report Type: Report from Study
  Country: US (occurrence: US)
  Receive Date: 20210727
  Receipt Date: 20210727
  Transmission Date: 20211014
  Serious: Yes (Hospitalization, Other)
  Sender: FDA-Public Use
  Company Number: US-GILEAD-2021-0541420

PATIENT
  Age: 36 Year
  Sex: Female

DRUGS (1)
  1. AZTREONAM LYSINE [Suspect]
     Active Substance: AZTREONAM LYSINE
     Indication: CYSTIC FIBROSIS
     Dosage: 75 MG, TID, 28/28
     Route: 065
     Dates: start: 201806

REACTIONS (10)
  - Syncope [Not Recovered/Not Resolved]
  - Drooling [Recovered/Resolved]
  - Loss of consciousness [Recovered/Resolved]
  - Hot flush [Unknown]
  - Apnoea [Recovered/Resolved]
  - Dehydration [Unknown]
  - Paralysis [Recovered/Resolved]
  - Heart rate increased [Unknown]
  - Loss of consciousness [Unknown]
  - Pyrexia [Unknown]

NARRATIVE: CASE EVENT DATE: 20210625
